APPROVED DRUG PRODUCT: HALOPERIDOL
Active Ingredient: HALOPERIDOL
Strength: 10MG
Dosage Form/Route: TABLET;ORAL
Application: A071075 | Product #001
Applicant: PUREPAC PHARMACEUTICAL CO
Approved: Aug 4, 1987 | RLD: No | RS: No | Type: DISCN